FAERS Safety Report 6892498-4 (Version None)
Quarter: 2010Q3

REPORT INFORMATION
  Report Type: 
  Country: None (occurrence: None)
  Receive Date: 20100731
  Receipt Date: 20080624
  Transmission Date: 20110219
  Serious: No
  Sender: FDA-Public Use
  Company Number: US-PFIZER INC-2008052622

PATIENT

DRUGS (2)
  1. AMLODIPINE [Suspect]
  2. ISOPTIN - SLOW RELEASE [Concomitant]

REACTIONS (3)
  - HYPERSENSITIVITY [None]
  - INSOMNIA [None]
  - NIGHTMARE [None]
